FAERS Safety Report 22522406 (Version 2)
Quarter: 2025Q2

REPORT INFORMATION
  Report Type: Spontaneous
  Country: KR (occurrence: KR)
  Receive Date: 20230605
  Receipt Date: 20250623
  Transmission Date: 20250717
  Serious: Yes (Hospitalization)
  Sender: ORGANON
  Company Number: KR-ORGANON-O2305KOR003232

PATIENT
  Age: 79 Year
  Weight: 64 kg

DRUGS (4)
  1. COZAAR [Suspect]
     Active Substance: LOSARTAN POTASSIUM
     Indication: Cardiovascular disorder
     Dosage: 50 MILLIGRAM, 1 DAY
     Route: 048
     Dates: start: 20190114
  2. PRAVASTATIN SODIUM [Suspect]
     Active Substance: PRAVASTATIN SODIUM
     Indication: Hyperlipidaemia
     Dosage: 40 MILLIGRAM, 1 DAY, UNCOATED TABLET
     Route: 048
     Dates: start: 20190311
  3. CARVEDILOL [Concomitant]
     Active Substance: CARVEDILOL
     Indication: Cardiovascular disorder
     Dosage: 6.2 MILLIGRAM, 0.5 DAY, UNCOATED TABLET
     Route: 048
     Dates: start: 20180416
  4. SITAGLIPTIN PHOSPHATE [Concomitant]
     Active Substance: SITAGLIPTIN PHOSPHATE
     Indication: Diabetes mellitus
     Dosage: 100 MILLIGRAM, 1 DAY
     Route: 048
     Dates: start: 20180628

REACTIONS (1)
  - Cardiac failure congestive [Recovered/Resolved]

NARRATIVE: CASE EVENT DATE: 20190622
